FAERS Safety Report 4687484-9 (Version None)
Quarter: 2005Q2

REPORT INFORMATION
  Report Type: 
  Country: None (occurrence: None)
  Receive Date: 20050608
  Receipt Date: 20050608
  Transmission Date: 20051028
  Serious: Yes (Life-Threatening)
  Sender: FDA-Public Use
  Company Number: None

PATIENT
  Sex: Female
  Weight: 54.8852 kg

DRUGS (13)
  1. BEVACIZUMAB [Suspect]
     Indication: OVARIAN CANCER
     Dosage: Q4W BEGINGING CYCEL 2
     Dates: start: 20050427
  2. BEVACIZUMAB [Suspect]
     Indication: OVARIAN CANCER
     Dosage: Q4W BEGINGING CYCEL 2
     Dates: start: 20050520
  3. CARBOPLATIN [Suspect]
     Indication: OVARIAN CANCER
     Dosage: Q4W
     Dates: start: 20050404
  4. CARBOPLATIN [Suspect]
     Indication: OVARIAN CANCER
     Dosage: Q4W
     Dates: start: 20050427
  5. CARBOPLATIN [Suspect]
     Indication: OVARIAN CANCER
     Dosage: Q4W
     Dates: start: 20050520
  6. TAXOL [Suspect]
     Indication: OVARIAN CANCER
     Dosage: Q4W
     Dates: start: 20050404
  7. TAXOL [Suspect]
     Indication: OVARIAN CANCER
     Dosage: Q4W
     Dates: start: 20050427
  8. TAXOL [Suspect]
     Indication: OVARIAN CANCER
     Dosage: Q4W
     Dates: start: 20050520
  9. ATIVAN [Concomitant]
  10. DECADRON [Concomitant]
  11. SEROQUEL [Concomitant]
  12. COMPAZINE [Concomitant]
  13. ZOFRAN [Concomitant]

REACTIONS (2)
  - WOUND DEHISCENCE [None]
  - WOUND SECRETION [None]
